FAERS Safety Report 21862427 (Version 1)
Quarter: 2023Q1

REPORT INFORMATION
  Report Type: Report from Study
  Country: US (occurrence: US)
  Receive Date: 20230114
  Receipt Date: 20230114
  Transmission Date: 20230418
  Serious: No
  Sender: FDA-Public Use
  Company Number: US-ABBVIE-4270122

PATIENT
  Age: 90 Year
  Sex: Male

DRUGS (1)
  1. LUPRON [Suspect]
     Active Substance: LEUPROLIDE ACETATE
     Indication: Product used for unknown indication
     Route: 030
     Dates: start: 20210101

REACTIONS (3)
  - Fall [Recovered/Resolved]
  - Upper limb fracture [Recovered/Resolved]
  - Fatigue [Not Recovered/Not Resolved]

NARRATIVE: CASE EVENT DATE: 20210112
